FAERS Safety Report 15702892 (Version 1)
Quarter: 2018Q4

REPORT INFORMATION
  Report Type: Spontaneous
  Country: US (occurrence: US)
  Receive Date: 20181210
  Receipt Date: 20181210
  Transmission Date: 20190205
  Serious: Yes (Hospitalization, Other)
  Sender: FDA-Public Use
  Company Number: US-UNICHEM PHARMACEUTICALS (USA) INC-UCM201811-000338

PATIENT
  Age: 72 Year
  Sex: Male

DRUGS (2)
  1. SACUBITRIL [Suspect]
     Active Substance: SACUBITRIL
  2. VALSARTAN. [Suspect]
     Active Substance: VALSARTAN

REACTIONS (4)
  - Small intestinal obstruction [Recovered/Resolved]
  - Intestinal angioedema [Recovered/Resolved]
  - Colitis [Recovered/Resolved]
  - Ileus [Recovered/Resolved]
